FAERS Safety Report 5958085-7 (Version None)
Quarter: 2008Q4

REPORT INFORMATION
  Report Type: 
  Country: None (occurrence: None)
  Receive Date: 20081119
  Receipt Date: 20081114
  Transmission Date: 20090506
  Serious: Yes (Other)
  Sender: FDA-Public Use
  Company Number: B0545085A

PATIENT
  Age: 2 Year
  Sex: Male

DRUGS (7)
  1. ARRANON [Suspect]
     Dosage: 70ML PER DAY
     Route: 042
     Dates: start: 20081020, end: 20081024
  2. ZYLORIC [Concomitant]
     Indication: PROPHYLAXIS
     Dosage: 99MG PER DAY
     Route: 048
     Dates: start: 20081020
  3. COTRIM [Concomitant]
     Indication: ANTIFUNGAL PROPHYLAXIS
     Dosage: .6G PER DAY
     Route: 048
     Dates: start: 20080829
  4. HYDROCORTISONE 10MG TAB [Concomitant]
     Indication: CENTRAL NERVOUS SYSTEM NEOPLASM
     Dosage: 20MG PER DAY
     Route: 042
     Dates: start: 20081020, end: 20081020
  5. CYLOCIDE [Concomitant]
     Indication: CENTRAL NERVOUS SYSTEM NEOPLASM
     Dosage: 25MG PER DAY
     Dates: start: 20081020, end: 20081020
  6. NEO-MINOPHAGEN-C [Concomitant]
     Dosage: 20MG PER DAY
     Route: 042
     Dates: start: 20081021, end: 20081102
  7. FUNGUARD [Concomitant]
     Indication: DRUG USE FOR UNKNOWN INDICATION
     Dosage: 50MG PER DAY
     Route: 042
     Dates: start: 20081014, end: 20081030

REACTIONS (3)
  - ALDOLASE INCREASED [None]
  - BLOOD CREATINE PHOSPHOKINASE INCREASED [None]
  - RHABDOMYOLYSIS [None]
